FAERS Safety Report 6192617-1 (Version None)
Quarter: 2009Q2

REPORT INFORMATION
  Report Type: 
  Country: None (occurrence: None)
  Receive Date: 20090518
  Receipt Date: 20090507
  Transmission Date: 20091009
  Serious: Yes (Other)
  Sender: FDA-Public Use
  Company Number: AU-AMGEN-US319566

PATIENT
  Sex: Male
  Weight: 34 kg

DRUGS (2)
  1. ENBREL [Suspect]
     Indication: JUVENILE ARTHRITIS
     Dosage: 15MG X 2/WEEK
     Route: 058
     Dates: start: 20080724, end: 20080904
  2. METHOTREXATE [Suspect]
     Indication: ARTHRITIS
     Dosage: 12.5MG WEEKLY
     Route: 048
     Dates: start: 20071101

REACTIONS (3)
  - ALANINE AMINOTRANSFERASE INCREASED [None]
  - ASPARTATE AMINOTRANSFERASE INCREASED [None]
  - LIVER DISORDER [None]
